FAERS Safety Report 8165376-0 (Version None)
Quarter: 2012Q1

REPORT INFORMATION
  Report Type: 
  Country: None (occurrence: None)
  Receive Date: 20120103
  Receipt Date: 20110928
  Transmission Date: 20120608
  Serious: No
  Sender: FDA-Public Use
  Company Number: AE-2011-001895

PATIENT
  Age: 55 Year
  Sex: Female

DRUGS (8)
  1. ASCORBIC ACID [Concomitant]
  2. FISH OIL (FISH OIL) [Concomitant]
  3. INCIVEK [Suspect]
     Dosage: 6 OTHER (2 OTHER , 3 IN 1 D) , ORAL
     Route: 048
     Dates: start: 20110915
  4. NEURONTIN [Concomitant]
  5. RIBAVIRIN [Concomitant]
  6. INTERFERON [Concomitant]
  7. MAGNESIUM (MAGNESIUM) [Concomitant]
  8. VITAMIN D [Concomitant]

REACTIONS (3)
  - NAUSEA [None]
  - TREMOR [None]
  - PRURITUS [None]
